FAERS Safety Report 9648270 (Version 1)
Quarter: 2013Q4

REPORT INFORMATION
  Report Type: Spontaneous
  Country: US (occurrence: US)
  Receive Date: 20131028
  Receipt Date: 20131028
  Transmission Date: 20140711
  Serious: Yes (Hospitalization, Other)
  Sender: FDA-Public Use
  Company Number: US-SUN PHARMACEUTICAL INDUSTRIES LTD-2013SUN04893

PATIENT
  Age: 53 Year
  Sex: Female

DRUGS (3)
  1. SERTRALINE HCL TABS 100MG [Suspect]
     Indication: PRODUCT USED FOR UNKNOWN INDICATION
     Dosage: 150 MG, QD
     Route: 065
  2. SERTRALINE HCL TABS 100MG [Suspect]
     Dosage: 200 MG, OD
     Route: 065
  3. RILUZOLE [Suspect]
     Indication: MAJOR DEPRESSION
     Dosage: 50 MG, BID
     Route: 065

REACTIONS (4)
  - Rhabdomyolysis [Recovering/Resolving]
  - Amnesia [Recovered/Resolved]
  - Nausea [Unknown]
  - Vomiting [Unknown]
